FAERS Safety Report 5287824-6 (Version None)
Quarter: 2007Q1

REPORT INFORMATION
  Report Type: 
  Country: None (occurrence: None)
  Receive Date: 20070112
  Receipt Date: 20060327
  Transmission Date: 20070707
  Serious: Yes (Hospitalization, Disabling, Other)
  Sender: FDA-Public Use
  Company Number: PHEH2006US03524

PATIENT
  Age: 13 Year
  Sex: Male
  Weight: 40.8 kg

DRUGS (4)
  1. FOCALIN [Suspect]
     Dosage: 2.5 MG. A.M. AND NOON, ORAL
     Route: 048
     Dates: start: 20060222, end: 20060228
  2. ABILIFY [Concomitant]
  3. NEURONTIN [Concomitant]
  4. LITHIUM CARBONATE [Concomitant]

REACTIONS (7)
  - AGGRESSION [None]
  - AGITATION [None]
  - CONDITION AGGRAVATED [None]
  - DEPRESSION [None]
  - PRURITUS [None]
  - RASH [None]
  - TIC [None]
